FAERS Safety Report 13783127 (Version 1)
Quarter: 2017Q3

REPORT INFORMATION
  Report Type: Spontaneous
  Country: US (occurrence: US)
  Receive Date: 20170724
  Receipt Date: 20170724
  Transmission Date: 20171127
  Serious: Yes (Other)
  Sender: FDA-Public Use
  Company Number: US-GLAXOSMITHKLINE-US2017111555

PATIENT
  Sex: Female

DRUGS (8)
  1. ACYCLOVIR. [Concomitant]
     Active Substance: ACYCLOVIR
  2. ALBUTEROL + IPRATROPIUM [Concomitant]
     Active Substance: ALBUTEROL\IPRATROPIUM
  3. OXYGEN. [Concomitant]
     Active Substance: OXYGEN
  4. VENTOLIN HFA [Suspect]
     Active Substance: ALBUTEROL SULFATE
     Indication: CHRONIC OBSTRUCTIVE PULMONARY DISEASE
     Dosage: 1 PUFF(S), BID
     Route: 055
     Dates: start: 1989
  5. CRANBERRY PILLS [Concomitant]
  6. FISH OIL [Concomitant]
     Active Substance: FISH OIL
  7. LISINOPRIL. [Concomitant]
     Active Substance: LISINOPRIL
  8. ALPRAZOLAM. [Concomitant]
     Active Substance: ALPRAZOLAM

REACTIONS (20)
  - Eyelid disorder [Unknown]
  - Eyelid operation [Recovered/Resolved]
  - Productive cough [Not Recovered/Not Resolved]
  - Herpes zoster [Unknown]
  - Epistaxis [Recovered/Resolved]
  - Condition aggravated [Unknown]
  - Cyst [Recovered/Resolved]
  - Dry eye [Unknown]
  - Cyst removal [Unknown]
  - Hypertension [Not Recovered/Not Resolved]
  - Angle closure glaucoma [Recovered/Resolved]
  - Dyspnoea [Not Recovered/Not Resolved]
  - Cataract operation [Unknown]
  - Drug ineffective [Unknown]
  - Heart rate increased [Not Recovered/Not Resolved]
  - Macular degeneration [Not Recovered/Not Resolved]
  - Superficial injury of eye [Recovered/Resolved]
  - Glaucoma surgery [Unknown]
  - Cataract [Recovered/Resolved]
  - Cough [Not Recovered/Not Resolved]

NARRATIVE: CASE EVENT DATE: 1992
